FAERS Safety Report 5217103-4 (Version None)
Quarter: 2007Q1

REPORT INFORMATION
  Report Type: 
  Country: None (occurrence: None)
  Receive Date: 20070119
  Receipt Date: 20070108
  Transmission Date: 20070707
  Serious: Yes (Other)
  Sender: FDA-Public Use
  Company Number: 2007SP000438

PATIENT

DRUGS (1)
  1. TEMODAL [Suspect]
     Indication: GLIOMA
     Dosage: PO
     Route: 048

REACTIONS (1)
  - LEIOMYOSARCOMA [None]
